FAERS Safety Report 21075276 (Version 1)
Quarter: 2022Q3

REPORT INFORMATION
  Report Type: Spontaneous
  Country: US (occurrence: None)
  Receive Date: 20220712
  Receipt Date: 20220712
  Transmission Date: 20221027
  Serious: No
  Sender: FDA-Public Use
  Company Number: None

PATIENT
  Age: 52 Year
  Sex: Female
  Weight: 94.05 kg

DRUGS (1)
  1. PAXLOVID [Suspect]
     Active Substance: NIRMATRELVIR\RITONAVIR

REACTIONS (6)
  - Rebound effect [None]
  - Oropharyngeal pain [None]
  - Sneezing [None]
  - Abdominal discomfort [None]
  - SARS-CoV-2 test positive [None]
  - Disease recurrence [None]

NARRATIVE: CASE EVENT DATE: 20220705
